FAERS Safety Report 8526989 (Version 3)
Quarter: 2013Q1

REPORT INFORMATION
  Report Type: Spontaneous
  Country: US (occurrence: US)
  Receive Date: 20120424
  Receipt Date: 20130325
  Transmission Date: 20140127
  Serious: Yes (Hospitalization, Other)
  Sender: FDA-Public Use
  Company Number: US-BAYER-2012-038676

PATIENT
  Age: 45 Year
  Sex: Female
  Weight: 68.03 kg

DRUGS (12)
  1. YASMIN [Suspect]
     Dosage: UNK
     Dates: start: 200310, end: 20070616
  2. HUMALOG [Concomitant]
     Dosage: 55 UNITS/DAY
     Route: 058
  3. PROVIGIL [Concomitant]
     Dosage: 200 MG, QD
     Route: 048
  4. COZAAR [Concomitant]
     Dosage: 50 MG, QD
     Route: 048
  5. PAXIL [Concomitant]
     Dosage: UNK
     Dates: start: 20070609
  6. PRILOSEC [Concomitant]
     Dosage: UNK
     Dates: start: 20070609
  7. MVI [Concomitant]
     Dosage: UNK
     Dates: start: 20070609
  8. AVELOX [Concomitant]
     Indication: PERIRECTAL ABSCESS
     Dosage: UNK
     Dates: start: 20070305
  9. FLAGYL [Concomitant]
     Indication: PERIRECTAL ABSCESS
     Dosage: UNK
     Dates: start: 20070305
  10. ZOCOR [Concomitant]
  11. ZETIA [Concomitant]
  12. FLUCONAZOLE [Concomitant]

REACTIONS (12)
  - Peripheral artery thrombosis [Recovered/Resolved]
  - Aortic thrombosis [None]
  - Transient ischaemic attack [None]
  - Injury [Recovered/Resolved]
  - Pain [None]
  - Emotional distress [None]
  - General physical health deterioration [Recovered/Resolved]
  - Anxiety [None]
  - Pain [Recovered/Resolved]
  - Hypersomnia [None]
  - Memory impairment [None]
  - Cognitive disorder [None]
